FAERS Safety Report 8010190-X (Version None)
Quarter: 2011Q4

REPORT INFORMATION
  Report Type: 
  Country: None (occurrence: None)
  Receive Date: 20111221
  Receipt Date: 20111206
  Transmission Date: 20120403
  Serious: Yes (Hospitalization)
  Sender: FDA-Public Use
  Company Number: DE-1189283

PATIENT
  Sex: Male

DRUGS (1)
  1. AZOPT [Suspect]
     Dosage: OPHTHALMIC
     Route: 047

REACTIONS (3)
  - CIRCULATORY COLLAPSE [None]
  - ARTHRALGIA [None]
  - SPORTS INJURY [None]
